FAERS Safety Report 14847396 (Version 1)
Quarter: 2018Q2

REPORT INFORMATION
  Report Type: Report from Study
  Country: US (occurrence: US)
  Receive Date: 20180504
  Receipt Date: 20180504
  Transmission Date: 20180711
  Serious: Yes (Death)
  Sender: FDA-Public Use
  Company Number: US-PFIZER INC-2018177482

PATIENT

DRUGS (6)
  1. PROPANOLOL HCL [Suspect]
     Active Substance: PROPRANOLOL HYDROCHLORIDE
     Indication: VENTRICULAR FIBRILLATION
  2. PROPANOLOL HCL [Suspect]
     Active Substance: PROPRANOLOL HYDROCHLORIDE
     Indication: TORSADE DE POINTES
  3. MEXILETINE [Concomitant]
     Active Substance: MEXILETINE
     Indication: TIMOTHY SYNDROME
     Dosage: UNK
  4. MEXILETINE [Concomitant]
     Active Substance: MEXILETINE
     Indication: TORSADE DE POINTES
  5. PROPANOLOL HCL [Suspect]
     Active Substance: PROPRANOLOL HYDROCHLORIDE
     Indication: TIMOTHY SYNDROME
     Dosage: 4 MG/KG, DAILY
  6. MEXILETINE [Concomitant]
     Active Substance: MEXILETINE
     Indication: VENTRICULAR FIBRILLATION

REACTIONS (2)
  - Ventricular fibrillation [Fatal]
  - Drug ineffective [Fatal]
